FAERS Safety Report 9792961 (Version 2)
Quarter: 2014Q1

REPORT INFORMATION
  Report Type: Spontaneous
  Country: NL (occurrence: NL)
  Receive Date: 20140102
  Receipt Date: 20140311
  Transmission Date: 20141002
  Serious: Yes (Hospitalization, Other)
  Sender: FDA-Public Use
  Company Number: NL-JNJFOC-20131216723

PATIENT
  Age: 18 Year
  Sex: Male

DRUGS (1)
  1. ITRACONAZOLE [Suspect]
     Indication: PROPHYLAXIS
     Route: 065

REACTIONS (2)
  - Aspergillus infection [Recovered/Resolved]
  - Drug resistance [Unknown]
